FAERS Safety Report 9049321 (Version 6)
Quarter: 2015Q3

REPORT INFORMATION
  Report Type: Report from Study
  Country: BR (occurrence: BR)
  Receive Date: 20130205
  Receipt Date: 20150729
  Transmission Date: 20151125
  Serious: Yes (Hospitalization, Other)
  Sender: FDA-Public Use
  Company Number: BR-ROCHE-731739

PATIENT
  Age: 73 Year
  Sex: Female
  Weight: 68 kg

DRUGS (18)
  1. CELEBRA [Suspect]
     Active Substance: CELECOXIB
     Indication: PRODUCT USED FOR UNKNOWN INDICATION
     Route: 065
  2. LABIRIN [Concomitant]
     Active Substance: BETAHISTINE
     Dosage: DRUG NAME REPORTED AS LABIRIN (BETAHISTINE HYDROCHLORIDE)
     Route: 065
  3. MABTHERA [Suspect]
     Active Substance: RITUXIMAB
     Dosage: LAST DATE OF INFUSION : 24/FEB/2012
     Route: 042
  4. MABTHERA [Suspect]
     Active Substance: RITUXIMAB
     Dosage: LAST DATE OF INFUSION /JUN/2013.
     Route: 042
  5. ACTEMRA [Suspect]
     Active Substance: TOCILIZUMAB
     Indication: RHEUMATOID ARTHRITIS
     Route: 042
     Dates: start: 20131015, end: 20150701
  6. ACTEMRA [Suspect]
     Active Substance: TOCILIZUMAB
     Route: 042
     Dates: start: 20131127
  7. CYCLOBENZAPRINE [Suspect]
     Active Substance: CYCLOBENZAPRINE
     Indication: PRODUCT USED FOR UNKNOWN INDICATION
     Route: 065
  8. OLCADIL [Concomitant]
     Active Substance: CLOXAZOLAM
     Route: 065
  9. DEFLAZACORT [Concomitant]
     Active Substance: DEFLAZACORT
     Route: 065
  10. DEFLAZACORT [Concomitant]
     Active Substance: DEFLAZACORT
     Route: 065
  11. SERTRALINE HYDROCHLORIDE. [Concomitant]
     Active Substance: SERTRALINE HYDROCHLORIDE
     Dosage: DRUG NAME REPORTED AS ASSERT
     Route: 065
  12. MABTHERA [Suspect]
     Active Substance: RITUXIMAB
     Indication: RHEUMATOID ARTHRITIS
     Dosage: FORM: INFUSION, RECEIVED TWO INFUSIONS.
     Route: 042
  13. MABTHERA [Suspect]
     Active Substance: RITUXIMAB
     Route: 042
  14. BENALET [Concomitant]
     Active Substance: AMMONIUM CHLORIDE\DIPHENHYDRAMINE HYDROCHLORIDE\SODIUM CITRATE
     Route: 065
  15. MABTHERA [Suspect]
     Active Substance: RITUXIMAB
     Route: 042
  16. FOLIC ACID. [Concomitant]
     Active Substance: FOLIC ACID
     Route: 065
  17. DEFLAZACORT [Concomitant]
     Active Substance: DEFLAZACORT
     Route: 065
  18. VITAMIN C [Concomitant]
     Active Substance: ASCORBIC ACID

REACTIONS (41)
  - Helicobacter infection [Recovered/Resolved]
  - Gait disturbance [Not Recovered/Not Resolved]
  - White blood cell count decreased [Unknown]
  - Depressed mood [Not Recovered/Not Resolved]
  - Depression [Not Recovered/Not Resolved]
  - Pruritus [Recovered/Resolved]
  - Enteritis infectious [Unknown]
  - Depression [Recovered/Resolved]
  - Abdominal pain upper [Recovered/Resolved]
  - Weight decreased [Recovering/Resolving]
  - Asthenia [Unknown]
  - Pain [Not Recovered/Not Resolved]
  - Feeling of despair [Unknown]
  - Gastric infection [Unknown]
  - Depression [Recovering/Resolving]
  - Syncope [Recovered/Resolved]
  - Weight decreased [Recovered/Resolved]
  - Gastrointestinal pain [Recovered/Resolved]
  - Hepatic pain [Unknown]
  - Weight increased [Unknown]
  - Mobility decreased [Unknown]
  - Blood calcium decreased [Unknown]
  - Sneezing [Recovered/Resolved]
  - Nausea [Recovered/Resolved]
  - Gastritis [Recovered/Resolved]
  - Enteritis infectious [Recovering/Resolving]
  - Arthritis [Not Recovered/Not Resolved]
  - Flatulence [Unknown]
  - Diarrhoea [Recovered/Resolved]
  - Fatigue [Recovered/Resolved]
  - Pain in extremity [Unknown]
  - Hypersensitivity [Recovered/Resolved]
  - Gastrointestinal disorder [Unknown]
  - Drug ineffective [Unknown]
  - Rheumatoid arthritis [Recovered/Resolved]
  - Anal polyp [Recovered/Resolved]
  - Decreased immune responsiveness [Unknown]
  - Malaise [Recovering/Resolving]
  - Movement disorder [Not Recovered/Not Resolved]
  - Atelectasis [Unknown]
  - Influenza [Unknown]

NARRATIVE: CASE EVENT DATE: 20091201
